FAERS Safety Report 24149052 (Version 1)
Quarter: 2024Q3

REPORT INFORMATION
  Report Type: Report from Study
  Country: US (occurrence: US)
  Receive Date: 20240729
  Receipt Date: 20240729
  Transmission Date: 20241017
  Serious: Yes (Death)
  Sender: ABBVIE
  Company Number: US-ABBVIE-5855601

PATIENT
  Age: 76 Year
  Sex: Female

DRUGS (9)
  1. VENCLEXTA [Suspect]
     Active Substance: VENETOCLAX
     Indication: B-cell small lymphocytic lymphoma
     Dosage: FORM STRENGTH:100 MG?TAKE 2 TABLET(S) BY MOUTH ONCE EVERY DAY. TAKE WITH A MEAL AND WATER. DO NOT...
     Route: 048
  2. VENCLEXTA [Suspect]
     Active Substance: VENETOCLAX
     Indication: B-cell small lymphocytic lymphoma
     Dosage: TAKE 20MG(2X10MG TABS) BY MOUTH EVERY DAY? ON WEEK 1
     Route: 048
  3. VENCLEXTA [Suspect]
     Active Substance: VENETOCLAX
     Indication: B-cell small lymphocytic lymphoma
     Dosage: THEN, 50MG(1X50MG TAB) DAILY BY MOUTH?WEEK 2
     Route: 048
  4. VENCLEXTA [Suspect]
     Active Substance: VENETOCLAX
     Indication: B-cell small lymphocytic lymphoma
     Dosage: THEN, 100MG(1X100MG TAB) BY MOUTH DAILY?WEEK 3
     Route: 048
     Dates: end: 20240301
  5. VENCLEXTA [Suspect]
     Active Substance: VENETOCLAX
     Indication: B-cell small lymphocytic lymphoma
     Dosage: THEN, 200MG(2X100MG TABS) DAILY WEEK 4?DOT: 10 JUN 2022
     Route: 048
  6. ROSUVASTATIN [Concomitant]
     Active Substance: ROSUVASTATIN\ROSUVASTATIN CALCIUM
     Indication: Product used for unknown indication
     Route: 048
  7. FLUTICASONE [Concomitant]
     Active Substance: FLUTICASONE
     Indication: Product used for unknown indication
     Dosage: 50MCG/INH
     Route: 045
  8. LORATADINE [Concomitant]
     Active Substance: LORATADINE
     Indication: Product used for unknown indication
     Route: 048
  9. LISINOPRIL [Concomitant]
     Active Substance: LISINOPRIL
     Indication: Product used for unknown indication
     Route: 048

REACTIONS (1)
  - Death [Fatal]

NARRATIVE: CASE EVENT DATE: 20240520
